FAERS Safety Report 5982052-0 (Version None)
Quarter: 2008Q4

REPORT INFORMATION
  Report Type: 
  Country: None (occurrence: None)
  Receive Date: 20081202
  Receipt Date: 20081120
  Transmission Date: 20090506
  Serious: Yes (Hospitalization, Other)
  Sender: FDA-Public Use
  Company Number: 2008-04014

PATIENT
  Age: 58 Year
  Sex: Male
  Weight: 72.8 kg

DRUGS (18)
  1. VELCADE [Suspect]
     Indication: MULTIPLE MYELOMA
     Dosage: 0.8 MG/M2, INTRAVENOUS, 1.3 MG/M2, INTRAVENOUS
     Route: 042
     Dates: start: 20031030
  2. VELCADE [Suspect]
     Indication: MULTIPLE MYELOMA
     Dosage: 0.8 MG/M2, INTRAVENOUS, 1.3 MG/M2, INTRAVENOUS
     Route: 042
     Dates: start: 20040526
  3. DEXAMETHASONE TAB [Suspect]
     Indication: MULTIPLE MYELOMA
     Dosage: 20 MG, ORAL
     Route: 048
     Dates: start: 20031030
  4. DEXAMETHASONE TAB [Suspect]
     Indication: MULTIPLE MYELOMA
     Dosage: 20 MG, ORAL
     Route: 048
     Dates: start: 20040525
  5. THALIDOMIDE [Suspect]
     Indication: MULTIPLE MYELOMA
     Dosage: 50 MG, ORAL, 100 MG, ORAL
     Route: 048
     Dates: start: 20031030
  6. THALIDOMIDE [Suspect]
     Indication: MULTIPLE MYELOMA
     Dosage: 50 MG, ORAL, 100 MG, ORAL
     Route: 048
     Dates: start: 20040526
  7. CISPLATIN [Suspect]
     Indication: MULTIPLE MYELOMA
     Dosage: 2.5 MG/M2, INTRAVENOUS, 10 MG/M2, INTRAVENOUS
     Route: 042
     Dates: start: 20031218
  8. CISPLATIN [Suspect]
     Indication: MULTIPLE MYELOMA
     Dosage: 2.5 MG/M2, INTRAVENOUS, 10 MG/M2, INTRAVENOUS
     Route: 042
     Dates: start: 20040526
  9. ADRIAMYCIN PFS [Suspect]
     Indication: MULTIPLE MYELOMA
     Dosage: 5 MG/M2, INTRAVENOUS, 10 MG/M2, INTRAVENOUS
     Route: 042
     Dates: start: 20031030
  10. ADRIAMYCIN PFS [Suspect]
     Indication: MULTIPLE MYELOMA
     Dosage: 5 MG/M2, INTRAVENOUS, 10 MG/M2, INTRAVENOUS
     Route: 042
     Dates: start: 20040526
  11. CYCLOPHOSPHAMIDE [Suspect]
     Indication: MULTIPLE MYELOMA
     Dosage: 400 MG/M2
     Route: 042
     Dates: start: 20040526
  12. ETOPOSIDE [Suspect]
     Indication: MULTIPLE MYELOMA
     Dosage: 40 MG/M2, INTRAVENOUS
     Route: 042
     Dates: start: 20040526
  13. ALLOPURINOL [Concomitant]
  14. GRANISETRON  HCL [Concomitant]
  15. NEUPOGEN [Concomitant]
  16. FUROSEMIDE [Concomitant]
  17. ZOLPIDEM TARTRATE [Concomitant]
  18. LORAZEPAM [Concomitant]

REACTIONS (16)
  - AMNESIA [None]
  - CENTRAL LINE INFECTION [None]
  - DEEP VEIN THROMBOSIS [None]
  - DIARRHOEA [None]
  - DISEASE PROGRESSION [None]
  - DISEASE RECURRENCE [None]
  - HAEMOGLOBIN DECREASED [None]
  - HYPOAESTHESIA [None]
  - NEUTROPHIL COUNT DECREASED [None]
  - PARAESTHESIA [None]
  - PLATELET COUNT DECREASED [None]
  - PNEUMONIA [None]
  - PULMONARY EMBOLISM [None]
  - STAPHYLOCOCCAL INFECTION [None]
  - SYNCOPE [None]
  - THROMBOPHLEBITIS SEPTIC [None]
